FAERS Safety Report 18205237 (Version 1)
Quarter: 2020Q3

REPORT INFORMATION
  Report Type: Spontaneous
  Country: GB (occurrence: GB)
  Receive Date: 20200828
  Receipt Date: 20200828
  Transmission Date: 20201103
  Serious: Yes (Other)
  Sender: FDA-Public Use
  Company Number: GB-AUROBINDO-AUR-APL-2020-044479

PATIENT
  Age: 41 Year
  Sex: Female
  Weight: 93 kg

DRUGS (9)
  1. SALBUTAMOL [Concomitant]
     Active Substance: ALBUTEROL
     Indication: PRODUCT USED FOR UNKNOWN INDICATION
     Dosage: 2 DOSAGE FORM, AS NECESSARY PUFFS, UP TO 4 TIMES A DAY)
     Route: 065
     Dates: start: 20190506
  2. BUDESONIDE. [Concomitant]
     Active Substance: BUDESONIDE
     Indication: PRODUCT USED FOR UNKNOWN INDICATION
     Dosage: UNK, 2 PUFFS TWICE A DAY PLUS AS NECESSARY
     Route: 065
     Dates: start: 20190506
  3. MONTELUKAST CHEWABLE TABLET [Suspect]
     Active Substance: MONTELUKAST SODIUM
     Indication: PRODUCT USED FOR UNKNOWN INDICATION
     Dosage: 4 MILLIGRAM, ONCE A DAY (NIGHT)
     Route: 065
     Dates: start: 20200729
  4. PARACETAMOL [Concomitant]
     Active Substance: ACETAMINOPHEN
     Indication: PRODUCT USED FOR UNKNOWN INDICATION
     Dosage: UNK, (AS NECESSARY, 1?2 UP TO FOUR TIMES A DAY, MAXIMUM 8/DAY)
     Route: 065
     Dates: start: 20190506
  5. FLUOXETINE [Concomitant]
     Active Substance: FLUOXETINE HYDROCHLORIDE
     Indication: PRODUCT USED FOR UNKNOWN INDICATION
     Dosage: 10 MILLILITER, ONCE A DAY
     Route: 065
     Dates: start: 20190506
  6. BECLOMETASONE [Concomitant]
     Active Substance: BECLOMETHASONE DIPROPIONATE
     Indication: SEASONAL ALLERGY
     Dosage: 8 DOSAGE FORM, ONCE A DAY (PUFFS, 2 IN EACH NOSTRIL)
     Route: 065
     Dates: start: 20200415
  7. PREDNISOLONE. [Concomitant]
     Active Substance: PREDNISOLONE
     Indication: PRODUCT USED FOR UNKNOWN INDICATION
     Dosage: 6 DOSAGE FORM, ONCE A DAY (FOR 5 DAYS)
     Route: 065
     Dates: start: 20200803
  8. AMITRIPTYLINE HYDROCHLORIDE. [Concomitant]
     Active Substance: AMITRIPTYLINE HYDROCHLORIDE
     Indication: PRODUCT USED FOR UNKNOWN INDICATION
     Dosage: 1 DOSAGE FORM, ONCE A DAY
     Route: 065
     Dates: start: 20190506
  9. CETIRIZINE [Concomitant]
     Active Substance: CETIRIZINE HYDROCHLORIDE
     Indication: PRODUCT USED FOR UNKNOWN INDICATION
     Dosage: 1 DOSAGE FORM, ONCE A DAY
     Route: 065
     Dates: start: 20190506

REACTIONS (2)
  - Illness [Recovering/Resolving]
  - Abdominal pain upper [Unknown]

NARRATIVE: CASE EVENT DATE: 20200803
